FAERS Safety Report 24437544 (Version 5)
Quarter: 2025Q2

REPORT INFORMATION
  Report Type: Report from Study
  Country: US (occurrence: US)
  Receive Date: 20241015
  Receipt Date: 20250531
  Transmission Date: 20250716
  Serious: Yes (Hospitalization, Other)
  Sender: STEMLINE THERAPEUTICS
  Company Number: US-Stemline Therapeutics, Inc.-2024ST002323

PATIENT

DRUGS (2)
  1. ORSERDU [Suspect]
     Active Substance: ELACESTRANT
     Indication: Breast cancer female
     Dosage: 345 MG, DAILY
     Route: 048
     Dates: start: 20230824
  2. ORSERDU [Suspect]
     Active Substance: ELACESTRANT
     Dosage: 345 MG, ONE TABLET DAILY
     Route: 048
     Dates: start: 20230824

REACTIONS (8)
  - Gastric haemorrhage [Unknown]
  - Lower limb fracture [Unknown]
  - Poor peripheral circulation [Unknown]
  - Haemorrhage [Unknown]
  - Limb discomfort [Unknown]
  - Diabetes mellitus [Unknown]
  - Fall [Not Recovered/Not Resolved]
  - Blood glucose increased [Unknown]
